FAERS Safety Report 14018928 (Version 1)
Quarter: 2017Q3

REPORT INFORMATION
  Report Type: Spontaneous
  Country: US (occurrence: US)
  Receive Date: 20170928
  Receipt Date: 20170928
  Transmission Date: 20171128
  Serious: Yes (Other)
  Sender: FDA-Public Use
  Company Number: US-TEVA-810754ACC

PATIENT
  Sex: Female

DRUGS (2)
  1. PARAGARD T 380A [Suspect]
     Active Substance: COPPER
     Dates: start: 20170712, end: 20170911
  2. ALLERGAN [Concomitant]
     Active Substance: PAPAIN

REACTIONS (3)
  - Muscle spasms [Unknown]
  - Device dislocation [Unknown]
  - Pain [Unknown]
